FAERS Safety Report 16008690 (Version 2)
Quarter: 2019Q1

REPORT INFORMATION
  Report Type: Report from Study
  Country: GB (occurrence: GB)
  Receive Date: 20190226
  Receipt Date: 20190304
  Transmission Date: 20190418
  Serious: Yes (Other)
  Sender: FDA-Public Use
  Company Number: GB-PFIZER INC-2019079662

PATIENT
  Sex: Female

DRUGS (4)
  1. DOXORUBICIN HCL [Suspect]
     Active Substance: DOXORUBICIN HYDROCHLORIDE
     Indication: HODGKIN^S DISEASE
     Dosage: UNK UNK, CYCLIC (DAYS 1 AND 15 OF A 28 DAYS CYCLE)
     Route: 042
  2. DACARBAZINE. [Suspect]
     Active Substance: DACARBAZINE
     Indication: HODGKIN^S DISEASE
     Dosage: CYCLIC (DAYS 1 AND 15 OF A 28 DAYS CYCLE)
     Route: 042
  3. EXAL [VINBLASTINE SULFATE] [Suspect]
     Active Substance: VINBLASTINE SULFATE
     Indication: HODGKIN^S DISEASE
     Dosage: UNK UNK, CYCLIC (DAYS 1 AND 15 OF A 28 DAYS CYCLE)
     Route: 042
  4. BLEOMYCIN HYDROCHLORIDE [Suspect]
     Active Substance: BLEOMYCIN HYDROCHLORIDE
     Indication: HODGKIN^S DISEASE
     Dosage: 5 MG, CYCLIC (ON DAYS 1 AND 15 OF A 28 DAYS )
     Route: 042

REACTIONS (1)
  - Premature menopause [Unknown]
